FAERS Safety Report 9320832 (Version 1)
Quarter: 2013Q2

REPORT INFORMATION
  Report Type: Report from Study
  Country: CH (occurrence: CH)
  Receive Date: 20130531
  Receipt Date: 20130531
  Transmission Date: 20140414
  Serious: Yes (Hospitalization)
  Sender: FDA-Public Use
  Company Number: CH-BIOGENIDEC-2013BI014406

PATIENT
  Age: 45 Year
  Sex: Female

DRUGS (4)
  1. BG00012 [Suspect]
     Indication: MULTIPLE SCLEROSIS
     Dates: start: 20110713
  2. DEXAMETHASON [Concomitant]
     Indication: SUDDEN HEARING LOSS
     Route: 048
     Dates: start: 20130130, end: 20130204
  3. DEXAMETHASON [Concomitant]
     Indication: SUDDEN HEARING LOSS
     Route: 048
     Dates: start: 20130202, end: 20130204
  4. AVALOX [Concomitant]
     Indication: ASTHMA
     Dates: start: 20130207

REACTIONS (1)
  - Psychotic disorder [Recovered/Resolved]
